FAERS Safety Report 6373717-X (Version None)
Quarter: 2009Q3

REPORT INFORMATION
  Report Type: 
  Country: None (occurrence: None)
  Receive Date: 20090924
  Receipt Date: 20090626
  Transmission Date: 20100115
  Serious: No
  Sender: FDA-Public Use
  Company Number: US-ASTRAZENECA-2009UW11434

PATIENT
  Age: 38 Year
  Sex: Male
  Weight: 84.4 kg

DRUGS (8)
  1. SEROQUEL XR [Suspect]
     Route: 048
  2. LAMICTAL [Concomitant]
     Indication: CONVULSION
  3. LEXAPRO [Concomitant]
  4. ABILIFY [Concomitant]
     Indication: DEPRESSION
  5. SINGULAIR [Concomitant]
  6. XOPENEX [Concomitant]
  7. AZMACORT [Concomitant]
  8. KLONOPIN [Concomitant]
     Indication: DEPRESSION

REACTIONS (5)
  - AGGRESSION [None]
  - IRRITABILITY [None]
  - NIGHTMARE [None]
  - SNORING [None]
  - SPONTANEOUS PENILE ERECTION [None]
